FAERS Safety Report 9074849 (Version 1)
Quarter: 2013Q1

REPORT INFORMATION
  Report Type: Report from Study
  Country: US (occurrence: US)
  Receive Date: 20130129
  Receipt Date: 20130129
  Transmission Date: 20140127
  Serious: No
  Sender: FDA-Public Use
  Company Number: US-ABBOTT-12P-163-0939770-00

PATIENT
  Age: 20 Year
  Sex: Female

DRUGS (3)
  1. HUMIRA 40 MG/0.8 ML PEN [Suspect]
     Indication: CROHN^S DISEASE
     Dosage: ON DAY 1 160MG
     Route: 058
     Dates: start: 201205, end: 201205
  2. HUMIRA 40 MG/0.8 ML PEN [Suspect]
     Dosage: ON DAY 15, 80 MG
  3. HUMIRA 40 MG/0.8 ML PEN [Suspect]
     Dosage: MAINTENANCE DOSING

REACTIONS (2)
  - Myalgia [Unknown]
  - Abdominal pain [Unknown]
